FAERS Safety Report 6717087-3 (Version None)
Quarter: 2010Q2

REPORT INFORMATION
  Report Type: 
  Country: None (occurrence: None)
  Receive Date: 20100510
  Receipt Date: 20100426
  Transmission Date: 20101027
  Serious: Yes (Hospitalization)
  Sender: FDA-Public Use
  Company Number: AT-CELGENEUS-009-21880-10042115

PATIENT
  Sex: Female
  Weight: 61 kg

DRUGS (9)
  1. REVLIMID [Suspect]
     Route: 048
     Dates: start: 20100408, end: 20100421
  2. FLUDARABINE PHOSPHATE [Suspect]
     Route: 051
     Dates: start: 20100401, end: 20100403
  3. RITUXIMAB [Suspect]
     Route: 051
     Dates: start: 20100401, end: 20100402
  4. ZYPREXA [Concomitant]
     Indication: DRUG USE FOR UNKNOWN INDICATION
     Route: 065
  5. THYREX [Concomitant]
     Indication: DRUG USE FOR UNKNOWN INDICATION
     Route: 065
  6. SERTALIN [Concomitant]
     Indication: DRUG USE FOR UNKNOWN INDICATION
     Route: 065
  7. MIRTABENE [Concomitant]
     Indication: DRUG USE FOR UNKNOWN INDICATION
     Route: 065
  8. T ASS [Concomitant]
     Indication: DRUG USE FOR UNKNOWN INDICATION
     Route: 065
  9. ZOLPIDEM TARTRATE [Concomitant]
     Indication: DRUG USE FOR UNKNOWN INDICATION
     Dosage: 2 PACKS
     Route: 051

REACTIONS (1)
  - TUMOUR FLARE [None]
